FAERS Safety Report 5099903-7 (Version None)
Quarter: 2006Q3

REPORT INFORMATION
  Report Type: 
  Country: None (occurrence: None)
  Receive Date: 20060906
  Receipt Date: 20060822
  Transmission Date: 20061208
  Serious: Yes (Hospitalization)
  Sender: FDA-Public Use
  Company Number: 2006EU002322

PATIENT
  Age: 47 Year
  Sex: Female

DRUGS (9)
  1. FK506(TACROLIMUS CAPSULES) [Suspect]
     Indication: LIVER TRANSPLANT
     Dosage: 2 MG, BID, ORAL
     Route: 048
     Dates: start: 20050318, end: 20060315
  2. MYCOPHENOLATE MOFETIL [Suspect]
     Indication: LIVER TRANSPLANT
     Dosage: 1 G, BID, ORAL; 1 G, BID, IV NOS
     Route: 048
     Dates: start: 20050313, end: 20050316
  3. MYCOPHENOLATE MOFETIL [Suspect]
     Indication: LIVER TRANSPLANT
     Dosage: 1 G, BID, ORAL; 1 G, BID, IV NOS
     Route: 048
     Dates: start: 20050317, end: 20060215
  4. ZENAPAX [Suspect]
     Indication: LIVER TRANSPLANT
     Dosage: 110 MG, D, IV NOS
     Route: 042
     Dates: start: 20050313, end: 20050320
  5. PREDNISONE TAB [Suspect]
     Indication: LIVER TRANSPLANT
     Dosage: 4 MG, D
     Dates: start: 20050320, end: 20060315
  6. METHYLPREDNISOLONE [Suspect]
     Indication: LIVER TRANSPLANT
     Dosage: 30 MG, D
     Dates: start: 20050313, end: 20060319
  7. ZOVIRAX [Concomitant]
  8. VALACYCLOVIR HCL [Concomitant]
  9. OMEPRAZOLE [Concomitant]

REACTIONS (2)
  - DIARRHOEA [None]
  - PYELONEPHRITIS [None]
